FAERS Safety Report 20262488 (Version 2)
Quarter: 2022Q1

REPORT INFORMATION
  Report Type: Spontaneous
  Country: JP (occurrence: JP)
  Receive Date: 20211231
  Receipt Date: 20220112
  Transmission Date: 20220424
  Serious: Yes (Hospitalization, Other)
  Sender: FDA-Public Use
  Company Number: JP-TEVA-2021-JP-1993040

PATIENT
  Age: 77 Year
  Sex: Male

DRUGS (3)
  1. PREDNISOLONE [Suspect]
     Active Substance: PREDNISOLONE
     Indication: Rheumatoid arthritis
     Dosage: 3 MILLIGRAM DAILY;
     Route: 065
  2. IGURATIMOD [Suspect]
     Active Substance: IGURATIMOD
     Indication: Rheumatoid arthritis
     Dosage: 25 MILLIGRAM DAILY;
     Route: 065
  3. FLUCONAZOLE [Suspect]
     Active Substance: FLUCONAZOLE
     Indication: Pneumonia cryptococcal
     Dosage: 400 MILLIGRAM DAILY;
     Route: 048

REACTIONS (3)
  - Pneumonia cryptococcal [Not Recovered/Not Resolved]
  - Drug eruption [Unknown]
  - Renal impairment [Unknown]
